FAERS Safety Report 6160633-1 (Version None)
Quarter: 2009Q2

REPORT INFORMATION
  Report Type: 
  Country: None (occurrence: None)
  Receive Date: 20090416
  Receipt Date: 20090403
  Transmission Date: 20091009
  Serious: Yes (Hospitalization)
  Sender: FDA-Public Use
  Company Number: 2009BI011146

PATIENT
  Sex: Female

DRUGS (1)
  1. ZEVALIN [Suspect]
     Indication: DIFFUSE LARGE B-CELL LYMPHOMA
     Dosage: 1200 MBQ, 1X; IV
     Route: 042
     Dates: start: 20080801, end: 20080801

REACTIONS (2)
  - BLINDNESS [None]
  - CEREBRAL ISCHAEMIA [None]
